FAERS Safety Report 6772122-1 (Version None)
Quarter: 2010Q2

REPORT INFORMATION
  Report Type: 
  Country: None (occurrence: None)
  Receive Date: 20100616
  Receipt Date: 20100609
  Transmission Date: 20101027
  Serious: Yes (Life-Threatening, Hospitalization)
  Sender: FDA-Public Use
  Company Number: B0657755A

PATIENT
  Sex: Female

DRUGS (17)
  1. AUGMENTIN '125' [Suspect]
     Indication: DRUG USE FOR UNKNOWN INDICATION
     Dosage: 3G PER DAY
     Route: 042
     Dates: start: 20100429, end: 20100429
  2. ATRACURIUM [Suspect]
     Route: 042
     Dates: start: 20100429, end: 20100429
  3. PROPOFOL [Suspect]
     Route: 042
     Dates: start: 20100429, end: 20100429
  4. SUFENTA PRESERVATIVE FREE [Suspect]
     Route: 042
     Dates: start: 20100429, end: 20100429
  5. KETAMINE [Suspect]
     Route: 042
     Dates: start: 20100429, end: 20100429
  6. SUPRANE [Suspect]
     Route: 055
     Dates: start: 20100429, end: 20100429
  7. NAROPIN [Suspect]
     Dosage: 15MG PER DAY
     Route: 026
     Dates: start: 20100429, end: 20100429
  8. NEURONTIN [Suspect]
     Indication: PREMEDICATION
     Route: 048
     Dates: start: 20100428, end: 20100429
  9. NORMACOL [Suspect]
     Indication: PREMEDICATION
     Route: 054
     Dates: start: 20100428, end: 20100428
  10. LOVENOX [Suspect]
     Indication: PREMEDICATION
     Dosage: .4ML PER DAY
     Route: 058
     Dates: start: 20100428, end: 20100429
  11. PERFALGAN [Suspect]
     Route: 042
     Dates: start: 20100429, end: 20100501
  12. ACUPAN [Suspect]
     Route: 042
     Dates: start: 20100429, end: 20100430
  13. MORPHINE [Suspect]
     Route: 042
     Dates: start: 20100429, end: 20100429
  14. EPHEDRINE [Suspect]
     Indication: DRUG USE FOR UNKNOWN INDICATION
     Route: 042
     Dates: start: 20100429, end: 20100429
  15. BETADINE [Suspect]
     Indication: PREOPERATIVE CARE
     Route: 061
     Dates: start: 20100428, end: 20100501
  16. BETADINE [Suspect]
     Route: 067
     Dates: start: 20100429, end: 20100429
  17. LEXOMIL [Concomitant]
     Route: 065

REACTIONS (12)
  - ACUTE PULMONARY OEDEMA [None]
  - HAEMATURIA [None]
  - HYPERKALAEMIA [None]
  - HYPOXIA [None]
  - METABOLIC ACIDOSIS [None]
  - OLIGURIA [None]
  - OXYGEN SATURATION DECREASED [None]
  - PLEURAL EFFUSION [None]
  - PRODUCT QUALITY ISSUE [None]
  - PYELOCALIECTASIS [None]
  - RENAL FAILURE ACUTE [None]
  - RESPIRATORY DISORDER [None]
